FAERS Safety Report 9794889 (Version 1)
Quarter: 2014Q1

REPORT INFORMATION
  Report Type: Spontaneous
  Country: US (occurrence: US)
  Receive Date: 20140102
  Receipt Date: 20140102
  Transmission Date: 20141002
  Serious: No
  Sender: FDA-Public Use
  Company Number: US-JHP PHARMACEUTICALS, LLC-JHP201300266

PATIENT
  Sex: Female

DRUGS (2)
  1. APLISOL DIAGNOSTIC ANTIGEN [Suspect]
     Indication: ACCIDENTAL EXPOSURE TO PRODUCT
     Dosage: SQUIRTED INTO EYE
     Dates: start: 20130423, end: 20130423
  2. APLISOL DIAGNOSTIC ANTIGEN [Suspect]
     Indication: TUBERCULIN TEST
     Dosage: 0.1 ML, SINGLE
     Route: 023
     Dates: start: 20130423, end: 20130423

REACTIONS (2)
  - Accidental exposure to product [Recovered/Resolved]
  - Eye irritation [Recovering/Resolving]
